FAERS Safety Report 9426074 (Version 1)
Quarter: 2013Q3

REPORT INFORMATION
  Report Type: Spontaneous
  Country: US (occurrence: US)
  Receive Date: 20130730
  Receipt Date: 20130730
  Transmission Date: 20140515
  Serious: No
  Sender: FDA-Public Use
  Company Number: US-B.I. PHARMACEUTICALS,INC./RIDGEFIELD-2013-BI-21925BP

PATIENT
  Age: 55 Year
  Sex: Male
  Weight: 71 kg

DRUGS (4)
  1. SPIRIVA [Suspect]
     Indication: LUNG DISORDER
     Dosage: 18 MCG
     Route: 055
     Dates: start: 201301
  2. SPIRIVA [Suspect]
     Indication: POSTOPERATIVE CARE
  3. PROAIR [Concomitant]
     Indication: LUNG DISORDER
     Dosage: FORMULATION: INHALATION AEROSOL
     Route: 055
     Dates: start: 201301
  4. PROAIR [Concomitant]
     Indication: CARDIAC OPERATION

REACTIONS (4)
  - Aphonia [Not Recovered/Not Resolved]
  - Off label use [Unknown]
  - Product quality issue [Unknown]
  - Product quality issue [Unknown]
